FAERS Safety Report 6936749-6 (Version None)
Quarter: 2010Q3

REPORT INFORMATION
  Report Type: 
  Country: None (occurrence: None)
  Receive Date: 20100818
  Receipt Date: 20100804
  Transmission Date: 20110219
  Serious: Yes (Hospitalization)
  Sender: FDA-Public Use
  Company Number: DSA_43685_2010

PATIENT
  Age: 86 Year
  Sex: Male

DRUGS (10)
  1. ENALAPRIL MALEATE [Suspect]
     Indication: CARDIAC FAILURE
     Dosage: (DF ORAL)
     Route: 048
  2. WARFARIN SODIUM [Suspect]
     Indication: ATRIAL FIBRILLATION
     Dosage: (DF ORAL)
     Route: 048
  3. ACETAMINOPHEN [Concomitant]
  4. ACETYLCYSTEINE [Concomitant]
  5. SALURES [Concomitant]
  6. BETNOVATE [Concomitant]
  7. COCILLANA-ETYFIN /01329201/ [Concomitant]
  8. FELODIPINE [Concomitant]
  9. SELOKENZOC [Concomitant]
  10. SIMVASTATIN [Concomitant]

REACTIONS (6)
  - BLOOD CREATININE INCREASED [None]
  - CONSTIPATION [None]
  - DEHYDRATION [None]
  - GENERAL PHYSICAL CONDITION ABNORMAL [None]
  - INTERNATIONAL NORMALISED RATIO ABNORMAL [None]
  - PROTHROMBIN LEVEL DECREASED [None]
